FAERS Safety Report 24000663 (Version 1)
Quarter: 2024Q2

REPORT INFORMATION
  Report Type: Spontaneous
  Country: US (occurrence: US)
  Receive Date: 20240621
  Receipt Date: 20240621
  Transmission Date: 20240716
  Serious: No
  Sender: FDA-Public Use
  Company Number: US-MYLANLABS-2024M1053235

PATIENT
  Sex: Male

DRUGS (1)
  1. WIXELA INHUB [Suspect]
     Active Substance: FLUTICASONE PROPIONATE\SALMETEROL XINAFOATE
     Indication: Asthma
     Dosage: 250 MICROGRAM, BIWEEKLY (250/50 MICROGRAM) TWICE WEEKLY
     Route: 065
     Dates: start: 2003

REACTIONS (3)
  - Device delivery system issue [Unknown]
  - Product quality issue [Unknown]
  - Inappropriate schedule of product administration [Unknown]
